FAERS Safety Report 10516361 (Version 1)
Quarter: 2014Q4

REPORT INFORMATION
  Report Type: Spontaneous
  Country: US (occurrence: None)
  Receive Date: 20141003
  Receipt Date: 20141003
  Transmission Date: 20150528
  Serious: Yes (Hospitalization)
  Sender: FDA-Public Use
  Company Number: 1241427

PATIENT
  Age: 55 Year
  Sex: Male
  Weight: 87.09 kg

DRUGS (3)
  1. INCIVEK [Suspect]
     Active Substance: TELAPREVIR
     Indication: HEPATITIS C
     Dosage: 1100 MG (375 MG, 3 IN 1 D), ORAL
     Route: 048
     Dates: start: 20130512
  2. PEGASYS [Suspect]
     Active Substance: PEGINTERFERON ALFA-2A
     Indication: HEPATITIS C
     Route: 058
     Dates: start: 20130512
  3. RIBAVIRIN (RIBAVIRIN) [Suspect]
     Active Substance: RIBAVIRIN
     Dosage: REDUCED DOSE (600 MG, DAILY), UNKNOWN

REACTIONS (2)
  - Pneumonia [None]
  - Neutrophil count decreased [None]

NARRATIVE: CASE EVENT DATE: 20130615
